FAERS Safety Report 13048287 (Version 2)
Quarter: 2017Q2

REPORT INFORMATION
  Report Type: Spontaneous
  Country: US (occurrence: US)
  Receive Date: 20161220
  Receipt Date: 20170413
  Transmission Date: 20170830
  Serious: No
  Sender: FDA-Public Use
  Company Number: US-009507513-1612USA000492

PATIENT
  Age: 29 Year
  Sex: Female
  Weight: 59.86 kg

DRUGS (1)
  1. NEXPLANON [Suspect]
     Active Substance: ETONOGESTREL
     Indication: CONTRACEPTION
     Dosage: UNK
     Route: 059
     Dates: start: 20151205

REACTIONS (6)
  - Fibrosis [Unknown]
  - Menstruation irregular [Unknown]
  - Device deployment issue [Not Recovered/Not Resolved]
  - Menorrhagia [Unknown]
  - Difficulty removing drug implant [Not Recovered/Not Resolved]
  - Complication of device removal [Not Recovered/Not Resolved]

NARRATIVE: CASE EVENT DATE: 201512
